FAERS Safety Report 10925105 (Version 2)
Quarter: 2015Q2

REPORT INFORMATION
  Report Type: Spontaneous
  Country: US (occurrence: US)
  Receive Date: 20150318
  Receipt Date: 20150524
  Transmission Date: 20150821
  Serious: No
  Sender: FDA-Public Use
  Company Number: US-JNJFOC-20120703058

PATIENT
  Age: 29 Year
  Sex: Male
  Weight: 83.01 kg

DRUGS (3)
  1. VITAMIN D3 [Concomitant]
     Active Substance: CHOLECALCIFEROL
     Indication: HYPOVITAMINOSIS
     Route: 065
     Dates: start: 201203, end: 201205
  2. NIZORAL A-D [Suspect]
     Active Substance: KETOCONAZOLE
     Indication: SEBORRHOEA
     Dosage: EVERY 2-3 DAYS
     Route: 061
     Dates: end: 20120627
  3. NIZORAL A-D [Suspect]
     Active Substance: KETOCONAZOLE
     Indication: ECZEMA
     Dosage: EVERY 2-3 DAYS
     Route: 061
     Dates: end: 20120627

REACTIONS (3)
  - Hair texture abnormal [Not Recovered/Not Resolved]
  - Drug administered at inappropriate site [Unknown]
  - Hair texture abnormal [Unknown]
